FAERS Safety Report 24818688 (Version 2)
Quarter: 2025Q1

REPORT INFORMATION
  Report Type: Spontaneous
  Country: US (occurrence: US)
  Receive Date: 20250108
  Receipt Date: 20250121
  Transmission Date: 20250408
  Serious: No
  Sender: SMARTPRACTICE DENMARK
  Company Number: US-SmartPractice Denmark ApS-2168631

PATIENT
  Sex: Female

DRUGS (1)
  1. T.R.U.E. TEST (THIN-LAYER RAPID USE EPICUTANEOUS PATCH TEST) [Suspect]
     Active Substance: ALLERGEN PATCH TEST
     Dates: end: 20231117

REACTIONS (4)
  - Skin test positive [Not Recovered/Not Resolved]
  - Condition aggravated [Not Recovered/Not Resolved]
  - Pain [Not Recovered/Not Resolved]
  - Pruritus [Not Recovered/Not Resolved]

NARRATIVE: CASE EVENT DATE: 20231117
